FAERS Safety Report 10046036 (Version 2)
Quarter: 2014Q1

REPORT INFORMATION
  Report Type: Spontaneous
  Country: GB (occurrence: GB)
  Receive Date: 20140331
  Receipt Date: 20140331
  Transmission Date: 20141002
  Serious: Yes (Life-Threatening, Hospitalization)
  Sender: FDA-Public Use
  Company Number: GB-009507513-1402GBR007053

PATIENT
  Age: 57 Year
  Sex: Female
  Weight: 102 kg

DRUGS (6)
  1. ROCURONIUM BROMIDE [Suspect]
     Indication: NEUROMUSCULAR BLOCKADE
     Dosage: 50 MG, UNK
     Route: 042
     Dates: start: 20140130, end: 20140130
  2. BECLOMETHASONE DIPROPIONATE [Concomitant]
     Route: 055
  3. CITALOPRAM [Concomitant]
     Dosage: UNK
     Dates: end: 201401
  4. ALBUTEROL [Concomitant]
     Route: 055
  5. SERTRALINE HYDROCHLORIDE [Concomitant]
     Dosage: UNK
     Dates: start: 201401
  6. ZOPICLONE [Concomitant]

REACTIONS (2)
  - Anaphylactic reaction [Unknown]
  - Renal failure [Not Recovered/Not Resolved]
